FAERS Safety Report 19548461 (Version 1)
Quarter: 2021Q3

REPORT INFORMATION
  Report Type: Spontaneous
  Country: FR (occurrence: FR)
  Receive Date: 20210715
  Receipt Date: 20210715
  Transmission Date: 20211014
  Serious: Yes (Death, Life-Threatening, Hospitalization, Other)
  Sender: FDA-Public Use
  Company Number: FR-ETHYPHARM-2021001016

PATIENT
  Sex: Female
  Weight: 2.4 kg

DRUGS (2)
  1. BUPRENORPHINE. [Suspect]
     Active Substance: BUPRENORPHINE
     Dosage: EXCESSIVE
     Route: 064
  2. BUPRENORPHINE. [Suspect]
     Active Substance: BUPRENORPHINE
     Route: 064

REACTIONS (5)
  - Placental disorder [Fatal]
  - Low birth weight baby [Fatal]
  - Foetal exposure during pregnancy [Fatal]
  - Placental infarction [Fatal]
  - Hypoperfusion [Fatal]
